FAERS Safety Report 10084599 (Version 1)
Quarter: 2014Q2

REPORT INFORMATION
  Report Type: Spontaneous
  Country: CA (occurrence: CA)
  Receive Date: 20140417
  Receipt Date: 20140417
  Transmission Date: 20141212
  Serious: Yes (Other)
  Sender: FDA-Public Use
  Company Number: CA-BRISTOL-MYERS SQUIBB COMPANY-20616223

PATIENT
  Age: 82 Year
  Sex: Female

DRUGS (1)
  1. ELIQUIS [Suspect]
     Indication: CEREBROVASCULAR ACCIDENT PROPHYLAXIS
     Dosage: REDUCED TO 2.5 MG

REACTIONS (2)
  - Gastric haemorrhage [Unknown]
  - Gastric ulcer [Unknown]
